FAERS Safety Report 6568933-8 (Version None)
Quarter: 2010Q1

REPORT INFORMATION
  Report Type: 
  Country: None (occurrence: None)
  Receive Date: 20100203
  Receipt Date: 20100128
  Transmission Date: 20100710
  Serious: Yes (Death)
  Sender: FDA-Public Use
  Company Number: US-PURDUE-USA-2010-0041672

PATIENT
  Sex: Male
  Weight: 90.703 kg

DRUGS (2)
  1. OXYCONTIN [Suspect]
     Indication: BACK PAIN
     Dosage: 40 MG, Q8H
     Route: 048
     Dates: start: 20081023
  2. OXYCONTIN [Suspect]
     Indication: ARTHRITIS

REACTIONS (2)
  - GUN SHOT WOUND [None]
  - INJURY [None]
